FAERS Safety Report 9251173 (Version 1)
Quarter: 2013Q2

REPORT INFORMATION
  Report Type: Report from Study
  Country: KR (occurrence: KR)
  Receive Date: 20130424
  Receipt Date: 20130424
  Transmission Date: 20140414
  Serious: Yes (Death)
  Sender: FDA-Public Use
  Company Number: KR-SANOFI-AVENTIS-2013SA041457

PATIENT
  Age: 76 Year
  Sex: Female
  Weight: 31 kg

DRUGS (2)
  1. INSULIN GLARGINE [Suspect]
     Indication: DIABETES MELLITUS
     Dosage: DOSE:8 UNIT(S)
     Route: 058
     Dates: start: 20130314, end: 20130415
  2. DIAMICRON MR [Concomitant]
     Indication: DIABETES MELLITUS
     Route: 048
     Dates: start: 20130314, end: 20130415

REACTIONS (1)
  - Dyspnoea [Fatal]
